FAERS Safety Report 8217410-7 (Version None)
Quarter: 2012Q1

REPORT INFORMATION
  Report Type: 
  Country: None (occurrence: None)
  Receive Date: 20120315
  Receipt Date: 20120308
  Transmission Date: 20120608
  Serious: Yes (Disabling, Other)
  Sender: FDA-Public Use
  Company Number: 2012MA003179

PATIENT
  Sex: Female

DRUGS (1)
  1. METOCLOPRAMIDE HYDROCHLORIDE [Suspect]
     Indication: PRODUCT USED FOR UNKNOWN INDICATION
     Dates: start: 19991201, end: 20081201

REACTIONS (8)
  - EMOTIONAL DISORDER [None]
  - FAMILY STRESS [None]
  - ASTHENIA [None]
  - TARDIVE DYSKINESIA [None]
  - DYSKINESIA [None]
  - ECONOMIC PROBLEM [None]
  - TREMOR [None]
  - ANXIETY [None]
